FAERS Safety Report 24313766 (Version 1)
Quarter: 2024Q3

REPORT INFORMATION
  Report Type: Spontaneous
  Country: FR (occurrence: FR)
  Receive Date: 20240912
  Receipt Date: 20240912
  Transmission Date: 20241016
  Serious: Yes (Hospitalization)
  Sender: ASTELLAS
  Company Number: None

PATIENT
  Age: 62 Year
  Sex: Female
  Weight: 49 kg

DRUGS (3)
  1. PROGRAF [Suspect]
     Active Substance: TACROLIMUS
     Indication: Organ transplant
     Route: 048
     Dates: start: 20240331
  2. CELLCEPT [Suspect]
     Active Substance: MYCOPHENOLATE MOFETIL
     Indication: Organ transplant
     Route: 048
     Dates: start: 20240331
  3. PREDNISOLONE SODIUM METAZOATE [Suspect]
     Active Substance: PREDNISOLONE SODIUM METAZOATE
     Indication: Organ transplant
     Route: 048
     Dates: start: 20240331

REACTIONS (1)
  - Chronic gastritis [Not Recovered/Not Resolved]

NARRATIVE: CASE EVENT DATE: 20240401
